FAERS Safety Report 5909051-9 (Version None)
Quarter: 2008Q4

REPORT INFORMATION
  Report Type: 
  Country: None (occurrence: None)
  Receive Date: 20081001
  Receipt Date: 20080918
  Transmission Date: 20090506
  Serious: Yes (Other)
  Sender: FDA-Public Use
  Company Number: 2008S1016635

PATIENT
  Age: 62 Year
  Sex: Female

DRUGS (7)
  1. ACETAMINOPHEN [Suspect]
     Indication: OSTEOARTHRITIS
     Dosage: 500 MG; ORAL
     Route: 048
  2. ACETAMINOPHEN [Suspect]
     Indication: PAIN
     Dosage: 500 MG; ORAL
     Route: 048
  3. WARFARIN SODIUM [Suspect]
     Indication: MITRAL VALVE REPLACEMENT
     Dosage: 4.7 G; DAILY
  4. DIGOXIN [Concomitant]
  5. SPIRONOLACTONE [Concomitant]
  6. BUMETANIDE [Concomitant]
  7. VERAPAMIL [Concomitant]

REACTIONS (5)
  - COAGULATION TIME PROLONGED [None]
  - DRUG INTERACTION [None]
  - FEMORAL NERVE PALSY [None]
  - NERVE ROOT COMPRESSION [None]
  - RETROPERITONEAL HAEMATOMA [None]
